FAERS Safety Report 18248482 (Version 1)
Quarter: 2020Q3

REPORT INFORMATION
  Report Type: Report from Study
  Country: US (occurrence: US)
  Receive Date: 20200909
  Receipt Date: 20200909
  Transmission Date: 20201103
  Serious: Yes (Other)
  Sender: FDA-Public Use
  Company Number: US-AMGEN-USASL2020144271

PATIENT
  Age: 65 Year
  Sex: Male

DRUGS (1)
  1. REPATHA [Suspect]
     Active Substance: EVOLOCUMAB
     Indication: HYPERLIPIDAEMIA
     Dosage: 140 MILLIGRAM, Q2WK
     Route: 065

REACTIONS (9)
  - Blood urine present [Unknown]
  - Sinus headache [Unknown]
  - Cerebral disorder [Unknown]
  - Rhinorrhoea [Unknown]
  - Myalgia [Unknown]
  - Sinus congestion [Unknown]
  - Epistaxis [Unknown]
  - Fatigue [Unknown]
  - Arthralgia [Unknown]
